FAERS Safety Report 4322647-3 (Version None)
Quarter: 2004Q1

REPORT INFORMATION
  Report Type: 
  Country: None (occurrence: None)
  Receive Date: 20040324
  Receipt Date: 20031212
  Transmission Date: 20041129
  Serious: No
  Sender: FDA-Public Use
  Company Number: US-BRISTOL-MYERS SQUIBB COMPANY-12458055

PATIENT
  Age: 34 Year
  Sex: Male
  Weight: 68 kg

DRUGS (5)
  1. REYATAZ [Suspect]
     Indication: HIV INFECTION
     Dosage: INTERRUPTED ON 05-DEC-2003 AND RESUMED ON 11-DEC-2003
     Route: 048
     Dates: start: 20031117
  2. EMTRIVA [Concomitant]
     Indication: HIV INFECTION
     Dosage: INTERRUPTED ON 05-DEC-2003 AND RESUMED ON 11-DEC-2003
  3. VIREAD [Concomitant]
     Indication: HIV INFECTION
     Dosage: INTERRUPTED ON 05-DEC-2003 AND RESUMED ON 11-DEC-2003
  4. VIDEX [Concomitant]
     Indication: HIV INFECTION
     Dosage: INTERRUPTED ON 05-DEC-2003 AND RESUMED ON 11-DEC-2003
  5. NORVIR [Concomitant]
     Indication: HIV INFECTION
     Dosage: INTERRUPTED ON 05-DEC-2003 AND RESUMED ON 11-DEC-2003

REACTIONS (1)
  - RASH PRURITIC [None]
